FAERS Safety Report 21873657 (Version 1)
Quarter: 2023Q1

REPORT INFORMATION
  Report Type: Spontaneous
  Country: US (occurrence: None)
  Receive Date: 20230116
  Receipt Date: 20230116
  Transmission Date: 20230417
  Serious: Yes (Disabling)
  Sender: FDA-Public Use
  Company Number: None

PATIENT
  Age: 34 Year
  Sex: Male
  Weight: 81 kg

DRUGS (3)
  1. PROPECIA [Suspect]
     Active Substance: FINASTERIDE
     Indication: Alopecia
     Dosage: OTHER QUANTITY : 1 TABLET(S);?FREQUENCY : DAILY;?
     Route: 048
     Dates: start: 20200521, end: 20230115
  2. WHEY [Concomitant]
     Active Substance: WHEY
  3. CREATINE MONOHYDRATE [Concomitant]
     Active Substance: CREATINE MONOHYDRATE

REACTIONS (3)
  - Libido decreased [None]
  - Semen volume decreased [None]
  - Premature ejaculation [None]

NARRATIVE: CASE EVENT DATE: 20230116
